FAERS Safety Report 17267480 (Version 1)
Quarter: 2020Q1

REPORT INFORMATION
  Report Type: Spontaneous
  Country: US (occurrence: US)
  Receive Date: 20191220
  Receipt Date: 20191220
  Transmission Date: 20200409
  Serious: No
  Sender: FDA-Public Use
  Company Number: None

PATIENT
  Sex: Female

DRUGS (6)
  1. SILDENAFIL 20MG [Suspect]
     Active Substance: SILDENAFIL
     Indication: PULMONARY ARTERIAL HYPERTENSION
     Route: 048
     Dates: start: 20170929
  2. GABAPENTIN. [Concomitant]
     Active Substance: GABAPENTIN
  3. LETARIS [Concomitant]
     Active Substance: AMBRISENTAN
  4. METHOCARBAM [Concomitant]
     Active Substance: METHOCARBAMOL
  5. TRIAMINIC CHILDRENS NIGHT TIME COLD AND COUGH [Concomitant]
     Active Substance: DIPHENHYDRAMINE HYDROCHLORIDE\PHENYLEPHRINE HYDROCHLORIDE
  6. FLUTICASONE. [Concomitant]
     Active Substance: FLUTICASONE

REACTIONS (1)
  - Intentional product misuse [None]
